FAERS Safety Report 5994921-6 (Version None)
Quarter: 2008Q4

REPORT INFORMATION
  Report Type: 
  Country: None (occurrence: None)
  Receive Date: 20081212
  Receipt Date: 20080918
  Transmission Date: 20090506
  Serious: No
  Sender: FDA-Public Use
  Company Number: US-ABBOTT-08P-163-0477036-00

PATIENT
  Sex: Female
  Weight: 72.64 kg

DRUGS (24)
  1. HUMIRA [Suspect]
     Indication: PSORIASIS
  2. HUMIRA [Suspect]
     Indication: PSORIATIC ARTHROPATHY
  3. WARFARIN SODIUM [Concomitant]
     Indication: PERIPHERAL EMBOLISM
     Route: 048
     Dates: start: 19880101
  4. WARFARIN SODIUM [Concomitant]
     Indication: PULMONARY EMBOLISM
  5. WARFARIN SODIUM [Concomitant]
     Indication: CEREBRAL ARTERY EMBOLISM
  6. AMITRITPYLINE [Concomitant]
     Indication: HEADACHE
     Route: 048
     Dates: start: 19980101
  7. CLOPIDOGREL [Concomitant]
     Indication: CEREBRAL ARTERY EMBOLISM
     Route: 048
  8. ESOMEPRAZOLE MAGNESIUM [Concomitant]
     Indication: GASTROOESOPHAGEAL REFLUX DISEASE
     Route: 048
     Dates: start: 19980101
  9. ROSUVASTATIN [Concomitant]
     Indication: BLOOD CHOLESTEROL INCREASED
     Route: 048
     Dates: start: 20060101
  10. METOPROLOL SUCCINATE [Concomitant]
     Indication: CARDIOVASCULAR EVENT PROPHYLAXIS
     Route: 048
     Dates: start: 20060101
  11. FENOFIBRATE [Concomitant]
     Indication: BLOOD CHOLESTEROL INCREASED
     Dosage: 48
     Route: 048
     Dates: start: 20060101
  12. DILTIAZEM [Concomitant]
     Indication: CARDIOVASCULAR EVENT PROPHYLAXIS
     Route: 048
     Dates: start: 20060101
  13. DILTIAZEM [Concomitant]
     Route: 048
     Dates: start: 20060101
  14. FUROSEMIDE [Concomitant]
     Indication: JOINT SWELLING
     Dosage: 3-40MG TABLETS DAILY
     Route: 048
     Dates: start: 20030101
  15. SPRINOLACTONE [Concomitant]
     Indication: JOINT SWELLING
     Route: 048
     Dates: start: 20030101
  16. POTASSIUM CHLORIDE [Concomitant]
     Indication: CARDIOVASCULAR EVENT PROPHYLAXIS
     Route: 048
     Dates: start: 20030101
  17. TRAZODONE HCL [Concomitant]
     Indication: HEADACHE
     Dosage: 2-50 MG TABS DAILY
     Route: 048
     Dates: start: 20030101
  18. ISOSORBIDE [Concomitant]
     Indication: CARDIOVASCULAR EVENT PROPHYLAXIS
     Dosage: 80 MILLIGRAMS
     Route: 048
     Dates: start: 20060101
  19. FOLIC ACID [Concomitant]
     Indication: PSORIASIS
     Route: 048
     Dates: start: 20030101
  20. FOLIC ACID [Concomitant]
     Indication: PSORIATIC ARTHROPATHY
  21. METHOTREXATE [Concomitant]
     Indication: PSORIASIS
     Route: 048
     Dates: start: 20030101
  22. METHOTREXATE [Concomitant]
     Indication: PSORIATIC ARTHROPATHY
  23. METFORMIN HCL [Concomitant]
     Indication: TYPE 2 DIABETES MELLITUS
     Route: 048
     Dates: start: 20070101
  24. EZETIMIBE [Concomitant]
     Indication: BLOOD CHOLESTEROL INCREASED
     Route: 048
     Dates: start: 20060101

REACTIONS (2)
  - LOCAL SWELLING [None]
  - LOCALISED INFECTION [None]
